FAERS Safety Report 14174225 (Version 1)
Quarter: 2017Q4

REPORT INFORMATION
  Report Type: Spontaneous
  Country: US (occurrence: US)
  Receive Date: 20171109
  Receipt Date: 20171109
  Transmission Date: 20180321
  Serious: Yes (Other)
  Sender: FDA-Public Use
  Company Number: US-BRACCO-2017US05006

PATIENT
  Sex: Male

DRUGS (3)
  1. PROHANCE [Suspect]
     Active Substance: GADOTERIDOL
     Indication: NUCLEAR MAGNETIC RESONANCE IMAGING
     Dosage: UNK
  2. MULTIHANCE [Suspect]
     Active Substance: GADOBENATE DIMEGLUMINE
     Indication: NUCLEAR MAGNETIC RESONANCE IMAGING
     Dosage: UNK
  3. GADOLINIUM [Suspect]
     Active Substance: GADOLINIUM
     Indication: NUCLEAR MAGNETIC RESONANCE IMAGING

REACTIONS (8)
  - Injury [Unknown]
  - Gadolinium deposition disease [Unknown]
  - Immobile [Unknown]
  - Cognitive disorder [Unknown]
  - Asthenia [Unknown]
  - Coordination abnormal [Unknown]
  - Emotional distress [Unknown]
  - Speech disorder [Unknown]
